FAERS Safety Report 14557034 (Version 2)
Quarter: 2018Q1

REPORT INFORMATION
  Report Type: Spontaneous
  Country: CA (occurrence: CA)
  Receive Date: 20180221
  Receipt Date: 20180305
  Transmission Date: 20180509
  Serious: Yes (Other)
  Sender: FDA-Public Use
  Company Number: CA-TEVA-2018-CA-861381

PATIENT
  Age: 71 Year
  Sex: Female

DRUGS (1)
  1. RATION-NYSTATIN [Suspect]
     Active Substance: NYSTATIN
     Indication: ORAL CANDIDIASIS
     Dosage: 20 ML DAILY; TOOK 8 DAYS OF HER 10 DAY COURSE
     Route: 048
     Dates: start: 20180129, end: 20180205

REACTIONS (2)
  - Urticaria [Recovering/Resolving]
  - Swelling face [Recovering/Resolving]

NARRATIVE: CASE EVENT DATE: 201802
